FAERS Safety Report 15634365 (Version 1)
Quarter: 2018Q4

REPORT INFORMATION
  Report Type: Spontaneous
  Country: US (occurrence: US)
  Receive Date: 20181119
  Receipt Date: 20181119
  Transmission Date: 20190205
  Serious: No
  Sender: FDA-Public Use
  Company Number: US-PFIZER INC-2018372764

PATIENT
  Age: 11 Month
  Sex: Male

DRUGS (5)
  1. ALBUTEROL [SALBUTAMOL] [Concomitant]
     Active Substance: ALBUTEROL
     Dosage: UNK
     Dates: start: 20180912
  2. SPIRONOLACTONE/HCTZ [Concomitant]
     Active Substance: HYDROCHLOROTHIAZIDE\SPIRONOLACTONE
     Dosage: UNK
     Dates: start: 20181023
  3. REVATIO [Suspect]
     Active Substance: SILDENAFIL CITRATE
     Dosage: 0.65 ML, 3X/DAY (112 ML BOTTLE)
     Route: 045
  4. REVATIO [Suspect]
     Active Substance: SILDENAFIL CITRATE
     Dosage: 0.65 ML, 3X/DAY (112 ML BOTTLE)
     Route: 045
     Dates: start: 20180913
  5. PULMICORT TURBUHALER [Concomitant]
     Active Substance: BUDESONIDE
     Dosage: UNK
     Dates: start: 20181015

REACTIONS (7)
  - Incorrect route of product administration [Unknown]
  - Product label issue [Unknown]
  - Product use issue [Unknown]
  - Poor quality product administered [Unknown]
  - Incorrect dose administered [Unknown]
  - Product physical consistency issue [Unknown]
  - Product preparation issue [Unknown]
